FAERS Safety Report 19730324 (Version 1)
Quarter: 2021Q3

REPORT INFORMATION
  Report Type: Spontaneous
  Country: GB (occurrence: GB)
  Receive Date: 20210820
  Receipt Date: 20210820
  Transmission Date: 20211014
  Serious: Yes (Hospitalization, Other)
  Sender: FDA-Public Use
  Company Number: GB-ASTRAZENECA-2021A682080

PATIENT
  Age: 71 Year
  Sex: Male
  Weight: 78 kg

DRUGS (9)
  1. DAPAGLIFLOZIN. [Suspect]
     Active Substance: DAPAGLIFLOZIN
     Indication: CARDIAC FAILURE
     Dosage: 10.0MG UNKNOWN
     Route: 048
     Dates: start: 20210705, end: 20210804
  2. ATORVASTATIN [Concomitant]
     Active Substance: ATORVASTATIN
     Indication: HYPERCHOLESTEROLAEMIA
  3. LOSARTAN. [Concomitant]
     Active Substance: LOSARTAN
  4. NEBIVOLOL. [Concomitant]
     Active Substance: NEBIVOLOL
  5. ISOSORBIDE MONONITRATE. [Concomitant]
     Active Substance: ISOSORBIDE MONONITRATE
  6. EDOXABAN [Concomitant]
     Active Substance: EDOXABAN TOSYLATE
  7. FUROSEMIDE. [Concomitant]
     Active Substance: FUROSEMIDE
  8. GLYCERYL TRINITRATE [Concomitant]
     Active Substance: NITROGLYCERIN
  9. LANSOPRAZOLE. [Concomitant]
     Active Substance: LANSOPRAZOLE

REACTIONS (6)
  - Vision blurred [Unknown]
  - Photopsia [Recovered/Resolved]
  - Visual impairment [Recovered/Resolved]
  - Photophobia [Unknown]
  - Altered visual depth perception [Recovered/Resolved]
  - Dizziness [Recovered/Resolved]

NARRATIVE: CASE EVENT DATE: 20210707
